FAERS Safety Report 5028302-9 (Version None)
Quarter: 2006Q2

REPORT INFORMATION
  Report Type: 
  Country: None (occurrence: None)
  Receive Date: 20060613
  Receipt Date: 20060602
  Transmission Date: 20061013
  Serious: Yes (Other)
  Sender: FDA-Public Use
  Company Number: 222758

PATIENT
  Age: 49 Year
  Sex: Female

DRUGS (1)
  1. RAPTIVA [Suspect]
     Indication: PSORIASIS
     Dosage: 0.142 MG/KG, 1/WEEK, SUBCUTANEOUS
     Route: 058

REACTIONS (3)
  - DISEASE RECURRENCE [None]
  - MENINGITIS CRYPTOCOCCAL [None]
  - PSORIASIS [None]
